FAERS Safety Report 17426839 (Version 2)
Quarter: 2020Q1

REPORT INFORMATION
  Report Type: Spontaneous
  Country: US (occurrence: US)
  Receive Date: 20200217
  Receipt Date: 20200313
  Transmission Date: 20200409
  Serious: No
  Sender: FDA-Public Use
  Company Number: US-BAYER-2020-027240

PATIENT
  Age: 37 Year
  Sex: Female

DRUGS (1)
  1. LEVONORGESTREL IUS [UNKNOWN] [Suspect]
     Active Substance: LEVONORGESTREL
     Dosage: UNKNOWN ?G PER DAY, CONTINUOUSLY
     Route: 015
     Dates: start: 200904, end: 201309

REACTIONS (1)
  - Stress urinary incontinence [None]

NARRATIVE: CASE EVENT DATE: 201112
